FAERS Safety Report 19351347 (Version 3)
Quarter: 2021Q2

REPORT INFORMATION
  Report Type: Spontaneous
  Country: CR (occurrence: CR)
  Receive Date: 20210531
  Receipt Date: 20210628
  Transmission Date: 20210717
  Serious: Yes (Death, Hospitalization, Other)
  Sender: FDA-Public Use
  Company Number: CR-ROCHE-2837391

PATIENT
  Age: 40 Year
  Sex: Male
  Weight: 93 kg

DRUGS (37)
  1. DOXORUBICIN [Concomitant]
     Active Substance: DOXORUBICIN
     Indication: FOLLICULAR LYMPHOMA
  2. VINCRISTINE [Concomitant]
     Active Substance: VINCRISTINE
     Indication: FOLLICULAR LYMPHOMA
     Dosage: INTERMITTENTLY
     Dates: start: 202102
  3. CISPLATIN. [Concomitant]
     Active Substance: CISPLATIN
     Indication: FOLLICULAR LYMPHOMA
  4. CYTARABINE. [Concomitant]
     Active Substance: CYTARABINE
     Indication: DIFFUSE LARGE B-CELL LYMPHOMA
     Dates: start: 20200831
  5. ETOPOSIDE. [Concomitant]
     Active Substance: ETOPOSIDE
     Indication: FOLLICULAR LYMPHOMA
  6. ENALAPRIL [Concomitant]
     Active Substance: ENALAPRIL
     Indication: HYPERTENSION
  7. AMITRIPTYLINE [Concomitant]
     Active Substance: AMITRIPTYLINE
  8. FLUOXETINE [Concomitant]
     Active Substance: FLUOXETINE HYDROCHLORIDE
  9. DOXORUBICIN [Concomitant]
     Active Substance: DOXORUBICIN
     Indication: DIFFUSE LARGE B-CELL LYMPHOMA
     Dosage: 8 CYCLES COMPLETED
     Dates: end: 20200302
  10. PREDNISONE. [Concomitant]
     Active Substance: PREDNISONE
     Indication: FOLLICULAR LYMPHOMA
  11. MESNA. [Concomitant]
     Active Substance: MESNA
     Indication: DIFFUSE LARGE B-CELL LYMPHOMA
     Dosage: 4 CYCLES
  12. PREDNISOLONE. [Concomitant]
     Active Substance: PREDNISOLONE
     Indication: DIFFUSE LARGE B-CELL LYMPHOMA
     Dosage: INTERMITTENTLY
     Dates: start: 202102
  13. CHLORAMBUCIL [Concomitant]
     Active Substance: CHLORAMBUCIL
     Indication: DIFFUSE LARGE B-CELL LYMPHOMA
     Dosage: INTERMITTENTLY
     Dates: start: 202102
  14. MORPHINE [Concomitant]
     Active Substance: MORPHINE
     Dosage: 1 AMPOULE EVERY 8 HOURS, SC++
     Route: 058
  15. MITOXANTRONE [Concomitant]
     Active Substance: MITOXANTRONE HYDROCHLORIDE
     Indication: DIFFUSE LARGE B-CELL LYMPHOMA
     Dosage: 4 CYCLES
  16. GABAPENTIN. [Concomitant]
     Active Substance: GABAPENTIN
  17. RITUXIMAB. [Suspect]
     Active Substance: RITUXIMAB
     Indication: DIFFUSE LARGE B-CELL LYMPHOMA
     Dosage: 8 CYCLES COMPLETED
     Route: 065
     Dates: end: 20200302
  18. CYCLOPHOSPHAMIDE. [Concomitant]
     Active Substance: CYCLOPHOSPHAMIDE
     Indication: FOLLICULAR LYMPHOMA
     Dosage: INTERMITTENTLY
     Dates: start: 202102
  19. PREDNISONE. [Concomitant]
     Active Substance: PREDNISONE
     Indication: DIFFUSE LARGE B-CELL LYMPHOMA
     Dosage: 8 CYCLES COMPLETED
     Dates: end: 20200302
  20. DEXAMETHASONE. [Concomitant]
     Active Substance: DEXAMETHASONE
     Indication: FOLLICULAR LYMPHOMA
  21. MITOXANTRONE [Concomitant]
     Active Substance: MITOXANTRONE HYDROCHLORIDE
     Indication: FOLLICULAR LYMPHOMA
  22. EPIVAL (COSTA RICA) [Concomitant]
     Dosage: 2 TABLETS IN THE MORNING AND 3 TABLETS IN THE AFTERNOON
  23. DEXAMETHASONE. [Concomitant]
     Active Substance: DEXAMETHASONE
     Indication: DIFFUSE LARGE B-CELL LYMPHOMA
     Dosage: HIGH DOSE
     Dates: start: 20200831
  24. CYTARABINE. [Concomitant]
     Active Substance: CYTARABINE
     Indication: FOLLICULAR LYMPHOMA
  25. CHLORAMBUCIL [Concomitant]
     Active Substance: CHLORAMBUCIL
     Indication: FOLLICULAR LYMPHOMA
  26. OMEPRAZOLE. [Concomitant]
     Active Substance: OMEPRAZOLE
  27. LOVASTATINE [Concomitant]
     Active Substance: LOVASTATIN
     Indication: DYSLIPIDAEMIA
  28. RITUXIMAB. [Suspect]
     Active Substance: RITUXIMAB
     Indication: FOLLICULAR LYMPHOMA
  29. CYCLOPHOSPHAMIDE. [Concomitant]
     Active Substance: CYCLOPHOSPHAMIDE
     Indication: DIFFUSE LARGE B-CELL LYMPHOMA
     Dosage: 8 CYCLES COMPLETED
     Dates: end: 20200302
  30. CISPLATIN. [Concomitant]
     Active Substance: CISPLATIN
     Indication: DIFFUSE LARGE B-CELL LYMPHOMA
     Dates: start: 20200831
  31. MESNA. [Concomitant]
     Active Substance: MESNA
     Indication: FOLLICULAR LYMPHOMA
  32. IFOSFAMIDE. [Concomitant]
     Active Substance: IFOSFAMIDE
     Indication: FOLLICULAR LYMPHOMA
  33. VINCRISTINE [Concomitant]
     Active Substance: VINCRISTINE
     Indication: DIFFUSE LARGE B-CELL LYMPHOMA
     Dosage: 8 CYCLES COMPLETED
     Dates: end: 20200302
  34. IFOSFAMIDE. [Concomitant]
     Active Substance: IFOSFAMIDE
     Indication: DIFFUSE LARGE B-CELL LYMPHOMA
     Dosage: 4 CYCLES
  35. ETOPOSIDE. [Concomitant]
     Active Substance: ETOPOSIDE
     Indication: DIFFUSE LARGE B-CELL LYMPHOMA
     Dosage: 4 CYCLES
  36. PREDNISOLONE. [Concomitant]
     Active Substance: PREDNISOLONE
     Indication: FOLLICULAR LYMPHOMA
  37. METOCLOPRAMIDE. [Concomitant]
     Active Substance: METOCLOPRAMIDE

REACTIONS (9)
  - Lymphadenopathy [Unknown]
  - Sepsis [Unknown]
  - Neutropenia [Fatal]
  - Nephropathy toxic [Unknown]
  - Deep vein thrombosis [Unknown]
  - Septic shock [Fatal]
  - Therapy non-responder [Unknown]
  - Pain [Unknown]
  - Infection [Fatal]

NARRATIVE: CASE EVENT DATE: 202006
